FAERS Safety Report 10730097 (Version 3)
Quarter: 2015Q1

REPORT INFORMATION
  Report Type: Spontaneous
  Country: US (occurrence: US)
  Receive Date: 20150122
  Receipt Date: 20150313
  Transmission Date: 20150721
  Serious: Yes (Hospitalization)
  Sender: FDA-Public Use
  Company Number: US-JNJFOC-20150106500

PATIENT
  Age: 49 Year
  Sex: Female
  Weight: 57 kg

DRUGS (24)
  1. BENADRYL [Suspect]
     Active Substance: DIPHENHYDRAMINE HYDROCHLORIDE
     Route: 065
  2. NOXAFIL [Concomitant]
     Active Substance: POSACONAZOLE
     Route: 065
     Dates: start: 20141117
  3. ZOVIRAX [Concomitant]
     Active Substance: ACYCLOVIR
     Route: 065
     Dates: start: 20141020
  4. MAGIC MOUTHWASH [Concomitant]
     Active Substance: DIPHENHYDRAMINE HYDROCHLORIDE\LIDOCAINE HYDROCHLORIDE\NYSTATIN
     Route: 065
  5. LEVAQUIN [Concomitant]
     Active Substance: LEVOFLOXACIN
     Route: 065
     Dates: start: 20141020
  6. AMBIEN [Concomitant]
     Active Substance: ZOLPIDEM TARTRATE
     Route: 065
     Dates: start: 20130909
  7. EXJADE [Concomitant]
     Active Substance: DEFERASIROX
     Route: 065
     Dates: start: 20141121
  8. KLORCON [Concomitant]
     Route: 065
     Dates: start: 20141013
  9. FAMOTIDINE. [Concomitant]
     Active Substance: FAMOTIDINE
     Route: 065
  10. TESSALON [Concomitant]
     Active Substance: BENZONATATE
     Route: 065
  11. GABAPENTIN. [Concomitant]
     Active Substance: GABAPENTIN
     Route: 065
  12. ZOFRAN [Concomitant]
     Active Substance: ONDANSETRON HYDROCHLORIDE
     Route: 065
     Dates: start: 20130909
  13. DEMEROL [Suspect]
     Active Substance: MEPERIDINE HYDROCHLORIDE
     Indication: PRODUCT USED FOR UNKNOWN INDICATION
     Route: 065
     Dates: start: 20141210
  14. ASP2215 [Suspect]
     Active Substance: GILTERITINIB
     Indication: ACUTE MYELOID LEUKAEMIA
     Route: 048
     Dates: start: 20141105
  15. KLONOPIN [Concomitant]
     Active Substance: CLONAZEPAM
     Route: 065
     Dates: start: 20141020
  16. NEURONTIN [Concomitant]
     Active Substance: GABAPENTIN
     Route: 065
     Dates: start: 20141119
  17. PENTAMIDINE [Concomitant]
     Active Substance: PENTAMIDINE
     Route: 065
  18. FIDAXOMICIN [Concomitant]
     Active Substance: FIDAXOMICIN
     Route: 065
  19. CLONAZEPAM. [Concomitant]
     Active Substance: CLONAZEPAM
     Route: 065
     Dates: start: 20141020
  20. LOPRESSOR [Concomitant]
     Active Substance: METOPROLOL TARTRATE
     Route: 065
     Dates: start: 20141020
  21. OXYCODONE [Concomitant]
     Active Substance: OXYCODONE
     Route: 065
     Dates: start: 20141020
  22. BENADRYL [Suspect]
     Active Substance: DIPHENHYDRAMINE HYDROCHLORIDE
     Indication: PREMEDICATION
     Route: 065
     Dates: start: 20141210, end: 20141210
  23. COMPAZINE [Concomitant]
     Active Substance: PROCHLORPERAZINE MALEATE
     Route: 065
  24. SPIRONOLACTONE. [Concomitant]
     Active Substance: SPIRONOLACTONE
     Route: 065

REACTIONS (9)
  - Clostridium difficile colitis [Recovered/Resolved]
  - Pyrexia [Unknown]
  - Lethargy [Unknown]
  - Hypotension [Recovered/Resolved]
  - Headache [Unknown]
  - Product use issue [Unknown]
  - Febrile neutropenia [Recovered/Resolved]
  - Mental status changes [Recovered/Resolved]
  - Pupillary reflex impaired [Unknown]

NARRATIVE: CASE EVENT DATE: 20141126
